FAERS Safety Report 21815066 (Version 1)
Quarter: 2023Q1

REPORT INFORMATION
  Report Type: Report from Study
  Country: US (occurrence: US)
  Receive Date: 20230104
  Receipt Date: 20230104
  Transmission Date: 20230418
  Serious: Yes (Other)
  Sender: FDA-Public Use
  Company Number: US-002147023-NVSC2022US301677

PATIENT
  Sex: Female

DRUGS (3)
  1. SANDOSTATIN LAR DEPOT [Suspect]
     Active Substance: OCTREOTIDE ACETATE
     Indication: Product used for unknown indication
     Dosage: UNK
     Route: 065
  2. SANDOSTATIN LAR DEPOT [Suspect]
     Active Substance: OCTREOTIDE ACETATE
  3. SANDOSTATIN LAR DEPOT [Suspect]
     Active Substance: OCTREOTIDE ACETATE

REACTIONS (12)
  - Thrombosis [Unknown]
  - Cataract [Unknown]
  - Hernia [Unknown]
  - Rotator cuff syndrome [Unknown]
  - Fall [Unknown]
  - Hepatic lesion [Unknown]
  - Carpal tunnel syndrome [Unknown]
  - Balance disorder [Unknown]
  - Back pain [Unknown]
  - Joint dislocation [Unknown]
  - Pain [Unknown]
  - Constipation [Unknown]
